FAERS Safety Report 4709488-X (Version None)
Quarter: 2005Q3

REPORT INFORMATION
  Report Type: 
  Country: None (occurrence: None)
  Receive Date: 20050708
  Receipt Date: 20050624
  Transmission Date: 20060218
  Serious: Yes (Hospitalization, Other)
  Sender: FDA-Public Use
  Company Number: DE-JNJFOC-20050606592

PATIENT
  Age: 70 Year
  Sex: Male
  Weight: 83 kg

DRUGS (1)
  1. INFLIXIMAB [Suspect]
     Indication: RHEUMATOID ARTHRITIS
     Route: 042

REACTIONS (22)
  - ACUTE RESPIRATORY DISTRESS SYNDROME [None]
  - ATRIAL FIBRILLATION [None]
  - BLADDER TAMPONADE [None]
  - DIABETES MELLITUS [None]
  - DIALYSIS [None]
  - DIARRHOEA [None]
  - HAEMATURIA [None]
  - HEPATOCELLULAR DAMAGE [None]
  - MEDICAL DEVICE COMPLICATION [None]
  - MUSCLE ATROPHY [None]
  - MYELOPATHY [None]
  - NEOPLASM SKIN [None]
  - PLEURAL EFFUSION [None]
  - PNEUMONIA [None]
  - POLYNEUROPATHY [None]
  - RENAL FAILURE [None]
  - SEPSIS [None]
  - SPLENOMEGALY [None]
  - STAPHYLOCOCCAL BACTERAEMIA [None]
  - THROMBOCYTOPENIA [None]
  - TRACHEAL HAEMORRHAGE [None]
  - URINARY TRACT INFECTION PSEUDOMONAL [None]
